FAERS Safety Report 6655260-3 (Version None)
Quarter: 2010Q1

REPORT INFORMATION
  Report Type: 
  Country: None (occurrence: None)
  Receive Date: 20100324
  Receipt Date: 20100302
  Transmission Date: 20100710
  Serious: Yes (Hospitalization)
  Sender: FDA-Public Use
  Company Number: JP-SOLVAY-00310001314

PATIENT
  Age: 14 Year
  Sex: Female

DRUGS (6)
  1. LUVOX [Suspect]
     Indication: DEPRESSION
     Dosage: ORAL, 1 DAY, DAILY, ORAL
     Route: 048
     Dates: start: 20100210, end: 20100210
  2. LUVOX [Suspect]
     Indication: DEPRESSION
     Dosage: ORAL, 1 DAY, DAILY, ORAL
     Route: 048
     Dates: end: 20100211
  3. RISPERDAL [Suspect]
     Indication: DRUG USE FOR UNKNOWN INDICATION
     Dosage: ORAL
     Route: 048
     Dates: start: 20100210, end: 20100210
  4. RISPERDAL [Suspect]
     Indication: DRUG USE FOR UNKNOWN INDICATION
     Dosage: ORAL
     Route: 048
     Dates: end: 20100211
  5. MEILAX (ETHYL LOFLAZEPATE) [Suspect]
     Indication: DRUG USE FOR UNKNOWN INDICATION
     Dosage: ORAL, ORAL
     Route: 048
     Dates: end: 20100211
  6. MEILAX (ETHYL LOFLAZEPATE) [Suspect]
     Indication: DRUG USE FOR UNKNOWN INDICATION
     Dosage: ORAL, ORAL
     Route: 048
     Dates: start: 20100210, end: 20100310

REACTIONS (1)
  - MULTIPLE DRUG OVERDOSE INTENTIONAL [None]
